FAERS Safety Report 11437283 (Version 1)
Quarter: 2015Q3

REPORT INFORMATION
  Report Type: Spontaneous
  Country: US (occurrence: US)
  Receive Date: 20150821
  Receipt Date: 20150821
  Transmission Date: 20151125
  Serious: Yes (Other)
  Sender: FDA-Public Use
  Company Number: US-ELI_LILLY_AND_COMPANY-US200703003986

PATIENT
  Age: 31 Year
  Sex: Female
  Weight: 57.14 kg

DRUGS (2)
  1. CYMBALTA [Suspect]
     Active Substance: DULOXETINE HYDROCHLORIDE
     Indication: DEPRESSION
     Dosage: 60 MG, UNKNOWN
     Route: 048
     Dates: start: 20070303, end: 20070313
  2. OXAPROZIN. [Concomitant]
     Active Substance: OXAPROZIN
     Indication: TENDONITIS
     Dosage: 1200 MG, DAILY (1/D)
     Dates: start: 20070301, end: 20070313

REACTIONS (1)
  - Stevens-Johnson syndrome [Recovering/Resolving]

NARRATIVE: CASE EVENT DATE: 20070310
